FAERS Safety Report 6848292-3 (Version None)
Quarter: 2010Q3

REPORT INFORMATION
  Report Type: 
  Country: None (occurrence: None)
  Receive Date: 20100716
  Receipt Date: 20100707
  Transmission Date: 20110219
  Serious: Yes (Other)
  Sender: FDA-Public Use
  Company Number: US-JNJCH-2010016209

PATIENT
  Age: 47 Year
  Sex: Female

DRUGS (1)
  1. FRESHBURST LISTERINE MOUTHWASH [Suspect]
     Indication: DENTAL DISORDER PROPHYLAXIS
     Dosage: TEXT:ONCE
     Route: 048
     Dates: start: 20100705, end: 20100706

REACTIONS (1)
  - APPLICATION SITE VESICLES [None]
